FAERS Safety Report 22835592 (Version 2)
Quarter: 2023Q4

REPORT INFORMATION
  Report Type: Spontaneous
  Country: US (occurrence: US)
  Receive Date: 20230818
  Receipt Date: 20231122
  Transmission Date: 20240109
  Serious: Yes (Other)
  Sender: FDA-Public Use
  Company Number: US-JNJFOC-20230825287

PATIENT
  Sex: Male
  Weight: 99.88 kg

DRUGS (2)
  1. REMICADE [Suspect]
     Active Substance: INFLIXIMAB
     Indication: Pyoderma gangrenosum
     Dosage: ONCE EVERY 2 WEEKS THEN ONCE EVERY 4 WEEKS AND THEN MAINTENANCE DOSE OF ONCE EVERY 8 WEEKS
     Route: 041
  2. CLARITIN [Concomitant]
     Active Substance: LORATADINE
     Indication: Premedication

REACTIONS (4)
  - Pyoderma gangrenosum [Unknown]
  - Tendon disorder [Unknown]
  - Drug hypersensitivity [Unknown]
  - Off label use [Unknown]
